FAERS Safety Report 19621012 (Version 1)
Quarter: 2021Q3

REPORT INFORMATION
  Report Type: Spontaneous
  Country: CL (occurrence: CL)
  Receive Date: 20210728
  Receipt Date: 20210728
  Transmission Date: 20211014
  Serious: Yes (Hospitalization, Other)
  Sender: FDA-Public Use
  Company Number: None

PATIENT
  Age: 46 Year
  Sex: Female
  Weight: 70 kg

DRUGS (1)
  1. OMEPRAZOL [Suspect]
     Active Substance: OMEPRAZOLE
     Indication: DISCOMFORT

REACTIONS (13)
  - Discomfort [None]
  - Seizure [None]
  - Cyanosis [None]
  - Hyperhidrosis [None]
  - Pruritus [None]
  - Diarrhoea [None]
  - Loss of consciousness [None]
  - Dyskinesia [None]
  - White blood cell count increased [None]
  - Asthenia [None]
  - Haematotoxicity [None]
  - Heart rate increased [None]
  - Arrhythmia [None]

NARRATIVE: CASE EVENT DATE: 20200925
